FAERS Safety Report 7689734-3 (Version None)
Quarter: 2011Q3

REPORT INFORMATION
  Report Type: 
  Country: None (occurrence: None)
  Receive Date: 20110817
  Receipt Date: 20110816
  Transmission Date: 20111222
  Serious: Yes (Other)
  Sender: FDA-Public Use
  Company Number: CA-AMGEN-CANCT2011012080

PATIENT
  Age: 56 Year
  Sex: Male

DRUGS (11)
  1. NORVASC [Concomitant]
     Dosage: 10 MG, QD
     Route: 048
     Dates: start: 20050101
  2. HYZAAR [Concomitant]
     Dosage: UNK UNK, QD
     Route: 048
     Dates: start: 20040101
  3. BENADRYL [Concomitant]
     Dosage: 25 MG, QWK
     Route: 048
     Dates: start: 20090502
  4. LIPITOR [Concomitant]
     Dosage: 10 MG, QD
     Route: 048
     Dates: start: 20070101
  5. FOLIC ACID [Concomitant]
     Dosage: 5 MG, QD
     Route: 048
     Dates: start: 20070101
  6. WELLBUTRIN XL [Concomitant]
     Dosage: 150 MG, QD
     Dates: start: 20060101
  7. PREDNISONE [Concomitant]
     Dosage: 5 MG, BID
     Route: 048
     Dates: start: 20070401
  8. PANTOPRAZOLE SODIUM [Concomitant]
     Dosage: 40 MG, QD
     Route: 048
     Dates: start: 20060501
  9. ASPIRIN [Concomitant]
     Dosage: 81 MG, QD
     Route: 048
     Dates: start: 20040101
  10. ETANERCEPT [Suspect]
     Indication: RHEUMATOID ARTHRITIS
     Dosage: 50 MG, QWK
     Route: 058
     Dates: start: 20090321
  11. METHOTREXATE [Concomitant]
     Dosage: 20 MG, QWK
     Route: 048
     Dates: start: 20080820

REACTIONS (1)
  - TRANSITIONAL CELL CARCINOMA [None]
